FAERS Safety Report 23574674 (Version 1)
Quarter: 2024Q1

REPORT INFORMATION
  Report Type: Other
  Country: CA (occurrence: CA)
  Receive Date: 20240228
  Receipt Date: 20240228
  Transmission Date: 20240410
  Serious: Yes (Other)
  Sender: FDA-Public Use
  Company Number: CA-APOTEX-2024AP002873

PATIENT
  Sex: Female

DRUGS (1)
  1. ATORVASTATIN [Suspect]
     Active Substance: ATORVASTATIN
     Indication: Arteriosclerosis
     Dosage: 10 MILLIGRAM
     Route: 065

REACTIONS (3)
  - Lupus-like syndrome [Unknown]
  - Drug hypersensitivity [Unknown]
  - Myalgia [Unknown]
